FAERS Safety Report 7073669-3 (Version None)
Quarter: 2010Q4

REPORT INFORMATION
  Report Type: 
  Country: None (occurrence: None)
  Receive Date: 20101029
  Receipt Date: 20100728
  Transmission Date: 20110411
  Serious: No
  Sender: FDA-Public Use
  Company Number: A0872742A

PATIENT
  Age: 46 Year
  Sex: Female

DRUGS (7)
  1. ADVAIR DISKUS 100/50 [Suspect]
     Indication: ASTHMA
     Dosage: 1PUFF TWICE PER DAY
     Route: 055
  2. VENTOLIN [Concomitant]
  3. FLONASE [Concomitant]
  4. SINGULAIR [Concomitant]
  5. METFORMIN [Concomitant]
  6. RANITIDINE [Concomitant]
  7. LORATADINE [Concomitant]

REACTIONS (2)
  - DRUG ADMINISTRATION ERROR [None]
  - LUNG INFECTION [None]
